FAERS Safety Report 4348652-9 (Version None)
Quarter: 2004Q2

REPORT INFORMATION
  Report Type: 
  Country: None (occurrence: None)
  Receive Date: 20040423
  Receipt Date: 20031027
  Transmission Date: 20050107
  Serious: Yes (Other)
  Sender: FDA-Public Use
  Company Number: AU-JNJFOC-20031100329

PATIENT
  Age: 33 Year
  Sex: Female
  Weight: 68 kg

DRUGS (5)
  1. RISPERDAL [Suspect]
     Indication: DEPRESSION
     Dosage: 4 MG, IN 1 DAY, ORAL
     Route: 048
     Dates: start: 20030601
  2. ZOLOFT [Concomitant]
  3. AURORIX (MOCLOBEMIDE) [Concomitant]
  4. MARCAINE [Concomitant]
  5. FENTANYL [Concomitant]

REACTIONS (5)
  - CAESAREAN SECTION [None]
  - COMPLICATIONS OF MATERNAL EXPOSURE TO THERAPEUTIC DRUGS [None]
  - DRUG EXPOSURE VIA BREAST MILK [None]
  - DRUG WITHDRAWAL SYNDROME NEONATAL [None]
  - MATERNAL DRUGS AFFECTING FOETUS [None]
